FAERS Safety Report 12429146 (Version 2)
Quarter: 2016Q2

REPORT INFORMATION
  Report Type: Spontaneous
  Country: US (occurrence: US)
  Receive Date: 20160602
  Receipt Date: 20160609
  Transmission Date: 20160815
  Serious: Yes (Death)
  Sender: FDA-Public Use
  Company Number: US-EISAI MEDICAL RESEARCH-EC-2016-017352

PATIENT
  Age: 35 Year
  Sex: Female
  Weight: 105.45 kg

DRUGS (7)
  1. PERCOCET [Interacting]
     Active Substance: ACETAMINOPHEN\OXYCODONE HYDROCHLORIDE
     Indication: PAIN
     Dosage: 5/325 MG ONCE DAILY AS NEEDED
     Route: 048
     Dates: start: 20131031, end: 20160522
  2. VIMPAT [Interacting]
     Active Substance: LACOSAMIDE
     Indication: EPILEPSY
     Route: 048
     Dates: start: 20131031, end: 20160522
  3. FYCOMPA [Suspect]
     Active Substance: PERAMPANEL
     Indication: EPILEPSY
     Route: 048
     Dates: start: 20151229, end: 20160522
  4. LORAZEPAM. [Interacting]
     Active Substance: LORAZEPAM
     Indication: EPILEPSY
     Route: 048
     Dates: start: 20150129, end: 20160522
  5. LORAZEPAM. [Interacting]
     Active Substance: LORAZEPAM
     Indication: ANXIETY
  6. LAMICTAL [Interacting]
     Active Substance: LAMOTRIGINE
     Indication: EPILEPSY
     Route: 048
     Dates: end: 20160522
  7. LORAZEPAM. [Interacting]
     Active Substance: LORAZEPAM
     Indication: PAIN

REACTIONS (2)
  - Sudden unexplained death in epilepsy [Fatal]
  - Drug interaction [Fatal]

NARRATIVE: CASE EVENT DATE: 20160522
